FAERS Safety Report 15833652 (Version 1)
Quarter: 2019Q1

REPORT INFORMATION
  Report Type: Spontaneous
  Country: IT (occurrence: IT)
  Receive Date: 20190116
  Receipt Date: 20190116
  Transmission Date: 20190417
  Serious: Yes (Other)
  Sender: FDA-Public Use
  Company Number: IT-PFIZER INC-2019018618

PATIENT
  Age: 32 Year
  Sex: Female

DRUGS (3)
  1. SERTRALINE HCL [Suspect]
     Active Substance: SERTRALINE HYDROCHLORIDE
     Dosage: UNK
     Route: 048
  2. ZOLOFT [Suspect]
     Active Substance: SERTRALINE HYDROCHLORIDE
     Indication: DEPRESSION
     Dosage: UNK
     Route: 048
     Dates: start: 20180101, end: 20180130
  3. MIRTAZAPINE. [Suspect]
     Active Substance: MIRTAZAPINE
     Indication: DEPRESSION
     Dosage: UNK
     Route: 048
     Dates: start: 20180101, end: 20180130

REACTIONS (6)
  - Feeling abnormal [Unknown]
  - Paraesthesia [Unknown]
  - Orthostatic hypotension [Unknown]
  - Vertigo [Unknown]
  - Vertigo positional [Unknown]
  - Nausea [Unknown]

NARRATIVE: CASE EVENT DATE: 20180129
